FAERS Safety Report 5351298-7 (Version None)
Quarter: 2007Q2

REPORT INFORMATION
  Report Type: 
  Country: None (occurrence: None)
  Receive Date: 20070608
  Receipt Date: 20070530
  Transmission Date: 20071010
  Serious: Yes (Death, Hospitalization)
  Sender: FDA-Public Use
  Company Number: FR-PFIZER INC-2007044198

PATIENT
  Age: 78 Year
  Sex: Female

DRUGS (15)
  1. AMLOR [Suspect]
     Indication: HYPERTENSION
     Route: 048
  2. TAHOR [Suspect]
     Route: 048
  3. FUROSEMIDE [Suspect]
     Indication: HYPERTENSION
     Route: 048
  4. AMIODARONE HCL [Suspect]
     Indication: ATRIAL FIBRILLATION
     Route: 048
  5. CLOPIDOGREL [Suspect]
     Route: 048
  6. GLIMEPIRIDE [Suspect]
     Indication: DIABETES MELLITUS
     Route: 048
  7. LEVOTHYROXINE SODIUM [Concomitant]
     Indication: SECONDARY HYPOTHYROIDISM
  8. CEFPODOXIME PROXETIL [Concomitant]
  9. SOLUPRED [Concomitant]
  10. SALBUTAMOL SULFATE [Concomitant]
  11. BECLOMETHASONE DIPROPIONATE [Concomitant]
  12. DEXTROMETHORPHAN HYDROBROMIDE [Concomitant]
  13. BETAMETHASONE [Concomitant]
  14. AMBROXOL HYDROCHLORIDE [Concomitant]
  15. GENTAMICIN SULFATE [Concomitant]

REACTIONS (3)
  - DYSPNOEA [None]
  - HYPOXIA [None]
  - PNEUMONIA [None]
